FAERS Safety Report 6205942-2 (Version None)
Quarter: 2009Q2

REPORT INFORMATION
  Report Type: 
  Country: None (occurrence: None)
  Receive Date: 20090527
  Receipt Date: 20090513
  Transmission Date: 20091009
  Serious: No
  Sender: FDA-Public Use
  Company Number: US-ABBOTT-09P-163-0573169-00

PATIENT
  Sex: Male
  Weight: 92.616 kg

DRUGS (12)
  1. SIMCOR [Suspect]
     Indication: HIGH DENSITY LIPOPROTEIN DECREASED
     Dates: start: 20081101
  2. ALLOPURINOL [Concomitant]
     Indication: GOUT
  3. TOPROL-XL [Concomitant]
     Indication: CORONARY ARTERIAL STENT INSERTION
  4. LISINOPRIL [Concomitant]
     Indication: CORONARY ARTERIAL STENT INSERTION
  5. DICLOFENAC SODIUM [Concomitant]
     Indication: GOUT
  6. ASPIRIN [Concomitant]
     Indication: CORONARY ARTERIAL STENT INSERTION
  7. FLOVENT [Concomitant]
     Indication: ASTHMA
  8. OMEPRAZOLE [Concomitant]
     Indication: DYSPEPSIA
  9. MULTI-VITAMIN [Concomitant]
     Indication: VITAMIN SUPPLEMENTATION
  10. FISH OIL [Concomitant]
     Indication: VITAMIN SUPPLEMENTATION
  11. GLUCOSAMINE [Concomitant]
     Indication: VITAMIN SUPPLEMENTATION
  12. CHONDROITIN [Concomitant]
     Indication: VITAMIN SUPPLEMENTATION

REACTIONS (1)
  - MUSCLE SPASMS [None]
